FAERS Safety Report 7933420-9 (Version None)
Quarter: 2011Q4

REPORT INFORMATION
  Report Type: 
  Country: None (occurrence: None)
  Receive Date: 20111116
  Receipt Date: 20111104
  Transmission Date: 20120403
  Serious: Yes (Other)
  Sender: FDA-Public Use
  Company Number: 2011SP052247

PATIENT
  Age: 39 Year
  Sex: Female
  Weight: 99 kg

DRUGS (8)
  1. XOLAAM [Concomitant]
  2. HEROIN [Concomitant]
  3. OMEPRAZOLE [Concomitant]
  4. VIRAFERONPEG [Suspect]
     Indication: HEPATITIS C
     Dosage: 50 MCG;QW
     Dates: start: 20090909, end: 20110817
  5. METHADONE HYDROCHLORIDE [Concomitant]
  6. ROHYPNOL [Concomitant]
  7. RIBAVIRIN [Suspect]
     Indication: HEPATITIS C
     Dosage: 600 MG;BID
     Dates: start: 20090909, end: 20110823
  8. NEXIUM [Concomitant]

REACTIONS (1)
  - GAMMA-GLUTAMYLTRANSFERASE INCREASED [None]
